FAERS Safety Report 19675038 (Version 1)
Quarter: 2021Q3

REPORT INFORMATION
  Report Type: Spontaneous
  Country: US (occurrence: US)
  Receive Date: 20210809
  Receipt Date: 20210809
  Transmission Date: 20211014
  Serious: No
  Sender: FDA-Public Use
  Company Number: US-ROCHE-2749726

PATIENT
  Sex: Female

DRUGS (4)
  1. PERJETA [Suspect]
     Active Substance: PERTUZUMAB
     Indication: BREAST CANCER FEMALE
     Dosage: 420/14ML
     Route: 042
     Dates: start: 20200123
  2. HERCEPTIN [Suspect]
     Active Substance: TRASTUZUMAB
     Indication: BREAST CANCER FEMALE
     Dosage: 150 MG/ VL
     Route: 041
     Dates: start: 20190523
  3. HERCEPTIN [Suspect]
     Active Substance: TRASTUZUMAB
     Indication: PSORIATIC ARTHROPATHY
  4. PERJETA [Suspect]
     Active Substance: PERTUZUMAB
     Indication: PSORIATIC ARTHROPATHY

REACTIONS (2)
  - Weight decreased [Unknown]
  - Diarrhoea [Unknown]
